FAERS Safety Report 19646838 (Version 2)
Quarter: 2022Q2

REPORT INFORMATION
  Report Type: Spontaneous
  Country: ES (occurrence: ES)
  Receive Date: 20210802
  Receipt Date: 20220510
  Transmission Date: 20220721
  Serious: Yes (Hospitalization, Other)
  Sender: FDA-Public Use
  Company Number: ES-TEO-20211712

PATIENT
  Age: 94 Year
  Sex: Female

DRUGS (5)
  1. SPIRONOLACTONE [Suspect]
     Active Substance: SPIRONOLACTONE
     Dosage: 25 MG, 1X/DAY
  2. DIGOXIN [Suspect]
     Active Substance: DIGOXIN
     Dosage: 0.125 MG, 1X/DAY
  3. EDOXABAN [Suspect]
     Active Substance: EDOXABAN
     Dosage: 30 MG, 1X/DAY
  4. FUROSEMIDE [Suspect]
     Active Substance: FUROSEMIDE
     Dosage: 120 MG, 1X/DAY
  5. METOPROLOL [Suspect]
     Active Substance: METOPROLOL
     Dosage: 25 MG, 2X/DAY

REACTIONS (2)
  - Syncope [Recovered/Resolved]
  - Bundle branch block bilateral [Recovered/Resolved]
